FAERS Safety Report 8763263 (Version 3)
Quarter: 2013Q2

REPORT INFORMATION
  Report Type: Spontaneous
  Country: US (occurrence: None)
  Receive Date: 20120816
  Receipt Date: 20130418
  Transmission Date: 20140414
  Serious: Yes (Hospitalization)
  Sender: FDA-Public Use
  Company Number: 2012PROUSA01757

PATIENT
  Age: 72 Year
  Sex: Male
  Weight: 77.5 kg

DRUGS (6)
  1. PROVENGE SIPULEUCEL-T [Suspect]
     Indication: PROSTATE CANCER METASTATIC
     Route: 042
     Dates: start: 20120716, end: 20120716
  2. NEXIUM I.V. [Concomitant]
  3. LISINOPRIL (LISINOPRIL) [Concomitant]
  4. FINASTERIDE (FINASTERIDE) [Concomitant]
  5. GLIPIZIDE (GLIPIZIDE) [Concomitant]
  6. LYCOPENE (LYCOPENE) [Concomitant]

REACTIONS (2)
  - Cerebrovascular accident [None]
  - Thalamic infarction [None]
